FAERS Safety Report 15214673 (Version 1)
Quarter: 2018Q3

REPORT INFORMATION
  Report Type: Spontaneous
  Country: US (occurrence: US)
  Receive Date: 20180730
  Receipt Date: 20180730
  Transmission Date: 20181010
  Serious: No
  Sender: FDA-Public Use
  Company Number: US-GLAXOSMITHKLINE-US2018130259

PATIENT
  Sex: Female

DRUGS (1)
  1. BENLYSTA [Suspect]
     Active Substance: BELIMUMAB
     Indication: PRODUCT USED FOR UNKNOWN INDICATION
     Dosage: UNK
     Route: 042
     Dates: end: 201806

REACTIONS (6)
  - Rosacea [Unknown]
  - Heart rate irregular [Unknown]
  - Cardiac disorder [Unknown]
  - Inflammatory marker increased [Unknown]
  - Oral mucosal eruption [Unknown]
  - Rash erythematous [Unknown]
